FAERS Safety Report 13891446 (Version 2)
Quarter: 2017Q3

REPORT INFORMATION
  Report Type: Spontaneous
  Country: CH (occurrence: CH)
  Receive Date: 20170822
  Receipt Date: 20170823
  Transmission Date: 20171127
  Serious: Yes (Hospitalization)
  Sender: FDA-Public Use
  Company Number: CH-ASTRAZENECA-2017SE82613

PATIENT
  Age: 30091 Day
  Sex: Male

DRUGS (11)
  1. ZINACEF [Suspect]
     Active Substance: CEFUROXIME SODIUM
     Route: 041
     Dates: start: 20170423, end: 20170424
  2. REFOBACIN [Suspect]
     Active Substance: GENTAMICIN SULFATE
     Route: 041
     Dates: start: 20170420, end: 20170420
  3. BELOC ZOK [Concomitant]
     Active Substance: METOPROLOL SUCCINATE
  4. AUGMENTIN [Suspect]
     Active Substance: AMOXICILLIN\CLAVULANATE POTASSIUM
     Route: 065
     Dates: start: 20170420, end: 20170421
  5. ROCEPHINE [Suspect]
     Active Substance: CEFTRIAXONE SODIUM
     Route: 041
     Dates: start: 20170421, end: 20170422
  6. SINTROM [Concomitant]
     Active Substance: ACENOCOUMAROL
     Dosage: ACCORDING TO THE DIARY
  7. NEXIUM [Suspect]
     Active Substance: ESOMEPRAZOLE MAGNESIUM
     Route: 048
     Dates: start: 20170420
  8. TOREM [Concomitant]
     Active Substance: TORSEMIDE
  9. ZINAT [Suspect]
     Active Substance: CEFUROXIME AXETIL
     Route: 048
     Dates: start: 20170425, end: 20170505
  10. LISINOPRIL. [Concomitant]
     Active Substance: LISINOPRIL
  11. ALDACTONE [Concomitant]
     Active Substance: SPIRONOLACTONE

REACTIONS (1)
  - Skin toxicity [Recovered/Resolved]

NARRATIVE: CASE EVENT DATE: 20170424
